FAERS Safety Report 9721717 (Version 2)
Quarter: 2013Q4

REPORT INFORMATION
  Report Type: Spontaneous
  Country: US (occurrence: US)
  Receive Date: 20131201
  Receipt Date: 20131201
  Transmission Date: 20140711
  Serious: No
  Sender: FDA-Public Use
  Company Number: US-ABBVIE-13P-163-1154205-00

PATIENT
  Sex: Female

DRUGS (2)
  1. ANDROGEL [Suspect]
     Indication: UNEVALUABLE EVENT
  2. ANDROGEL [Suspect]
     Indication: UNEVALUABLE EVENT

REACTIONS (2)
  - Accidental exposure to product by child [Not Recovered/Not Resolved]
  - Hair growth abnormal [Not Recovered/Not Resolved]
